FAERS Safety Report 8429647-2 (Version None)
Quarter: 2012Q2

REPORT INFORMATION
  Report Type: 
  Country: None (occurrence: None)
  Receive Date: 20120612
  Receipt Date: 20120522
  Transmission Date: 20120825
  Serious: Yes (Life-Threatening, Hospitalization)
  Sender: FDA-Public Use
  Company Number: HN-ASTRAZENECA-2012SE24163

PATIENT
  Sex: Male

DRUGS (1)
  1. DIPRIVAN [Suspect]
     Indication: SEDATION
     Dosage: 20MG/ML, ONCE/ SINGLE ADMINISTRATION
     Route: 042
     Dates: start: 20120411, end: 20120411

REACTIONS (2)
  - PNEUMONIA [None]
  - SEPTIC SHOCK [None]
